FAERS Safety Report 8909901 (Version 2)
Quarter: 2012Q4

REPORT INFORMATION
  Report Type: 
  Country: JP (occurrence: JP)
  Receive Date: 20121115
  Receipt Date: 20121128
  Transmission Date: 20130627
  Serious: Yes (Hospitalization)
  Sender: FDA-Public Use
  Company Number: JP-PFIZER INC-2012283359

PATIENT
  Age: 70 Year
  Sex: Male

DRUGS (1)
  1. JZOLOFT [Suspect]
     Indication: DEPRESSION
     Dosage: 25 mg, 1x/day
     Route: 048

REACTIONS (2)
  - Pneumonia [Recovered/Resolved]
  - Dysphagia [Recovered/Resolved]
